FAERS Safety Report 9677422 (Version 1)
Quarter: 2013Q4

REPORT INFORMATION
  Report Type: Spontaneous
  Country: US (occurrence: US)
  Receive Date: 20131108
  Receipt Date: 20131108
  Transmission Date: 20140711
  Serious: No
  Sender: FDA-Public Use
  Company Number: US-ENDO PHARMACEUTICALS INC.-PERP20120004

PATIENT
  Age: 57 Year
  Sex: Male

DRUGS (2)
  1. PERPHENAZINE TABLETS 16MG [Suspect]
     Indication: SCHIZOPHRENIA
     Route: 048
  2. PERPHENAZINE TABLETS 16MG [Suspect]
     Route: 048

REACTIONS (1)
  - Dyskinesia [Not Recovered/Not Resolved]
